FAERS Safety Report 20429545 (Version 1)
Quarter: 2022Q1

REPORT INFORMATION
  Report Type: Spontaneous
  Country: LT (occurrence: LT)
  Receive Date: 20220204
  Receipt Date: 20220204
  Transmission Date: 20220423
  Serious: Yes (Death, Other)
  Sender: FDA-Public Use
  Company Number: LT-BAYER-2022A015399

PATIENT
  Age: 57 Year
  Sex: Male

DRUGS (5)
  1. SORAFENIB [Suspect]
     Active Substance: SORAFENIB
  2. FLUOROURACIL\LEUCOVORIN CALCIUM\OXALIPLATIN [Suspect]
     Active Substance: FLUOROURACIL\LEUCOVORIN CALCIUM\OXALIPLATIN
     Dosage: UNK
     Dates: start: 20181130, end: 20190226
  3. DOXORUBICIN [Suspect]
     Active Substance: DOXORUBICIN
     Dosage: UNK
  4. CABOZANTINIB [Suspect]
     Active Substance: CABOZANTINIB
     Dosage: DAILY DOSE 60 MG
  5. CABOZANTINIB [Suspect]
     Active Substance: CABOZANTINIB
     Dosage: DAILY DOSE 40 MG

REACTIONS (5)
  - Bleeding varicose vein [Fatal]
  - Metastases to lung [None]
  - Metastases to liver [None]
  - Hepatocellular carcinoma [None]
  - Drug ineffective [None]

NARRATIVE: CASE EVENT DATE: 20201129
